FAERS Safety Report 12339029 (Version 1)
Quarter: 2016Q2

REPORT INFORMATION
  Report Type: Spontaneous
  Country: US (occurrence: US)
  Receive Date: 20160505
  Receipt Date: 20160505
  Transmission Date: 20160815
  Serious: No
  Sender: FDA-Public Use
  Company Number: US-009507513-1604USA012258

PATIENT
  Sex: Female
  Weight: 53.52 kg

DRUGS (3)
  1. FOSAMAX [Suspect]
     Active Substance: ALENDRONATE SODIUM
     Route: 048
  2. PROLIA [Suspect]
     Active Substance: DENOSUMAB
  3. DUAVEE [Suspect]
     Active Substance: BAZEDOXIFENE ACETATE\ESTROGENS, CONJUGATED
     Indication: OSTEOPENIA
     Dosage: 0.45/20MG ONE A DAY BY MOUTH
     Route: 048
     Dates: start: 201506

REACTIONS (7)
  - Bone pain [Unknown]
  - Dry skin [Unknown]
  - Osteopenia [Unknown]
  - Pain [Unknown]
  - Drug intolerance [Unknown]
  - Musculoskeletal discomfort [Unknown]
  - Pain in jaw [Unknown]
